FAERS Safety Report 7314216-8 (Version None)
Quarter: 2011Q1

REPORT INFORMATION
  Report Type: 
  Country: None (occurrence: None)
  Receive Date: 20110225
  Receipt Date: 20100610
  Transmission Date: 20110831
  Serious: Yes (Other)
  Sender: FDA-Public Use
  Company Number: US-MYLANLABS-2010S1010370

PATIENT
  Sex: Female

DRUGS (3)
  1. ACCUTANE [Suspect]
     Indication: ACNE
     Dates: start: 20060901, end: 20061001
  2. AMNESTEEM [Suspect]
     Indication: ACNE
     Dates: start: 20061001, end: 20061201
  3. CLARAVIS [Suspect]
     Indication: ACNE
     Dates: start: 20061201, end: 20070201

REACTIONS (1)
  - INFLAMMATORY BOWEL DISEASE [None]
